FAERS Safety Report 7652825-7 (Version None)
Quarter: 2011Q3

REPORT INFORMATION
  Report Type: 
  Country: None (occurrence: None)
  Receive Date: 20110722
  Receipt Date: 20110504
  Transmission Date: 20111222
  Serious: No
  Sender: FDA-Public Use
  Company Number: 2011AL000034

PATIENT
  Age: 31 Year
  Sex: Female

DRUGS (1)
  1. FOLOTYN [Suspect]
     Indication: T-CELL LYMPHOMA
     Dosage: QW; IV
     Route: 042
     Dates: start: 20100101, end: 20110427

REACTIONS (3)
  - COUGH [None]
  - CHEST PAIN [None]
  - DYSPNOEA [None]
